FAERS Safety Report 19084941 (Version 2)
Quarter: 2021Q2

REPORT INFORMATION
  Report Type: Other
  Country: US (occurrence: US)
  Receive Date: 20210401
  Receipt Date: 20210518
  Transmission Date: 20210717
  Serious: Yes (Death)
  Sender: FDA-Public Use
  Company Number: US-ROCHE-2797419

PATIENT
  Age: 66 Year
  Sex: Female
  Weight: 61.56 kg

DRUGS (2)
  1. TECENTRIQ [Suspect]
     Active Substance: ATEZOLIZUMAB
     Indication: RECTAL CANCER
     Dosage: VIAL, 1200 MG/20ML?DATE OF ADMINISTRATION: 04/FEB/2021
     Route: 041
  2. TECENTRIQ [Suspect]
     Active Substance: ATEZOLIZUMAB
     Indication: NEUROENDOCRINE CARCINOMA

REACTIONS (2)
  - Off label use [Fatal]
  - Death [Fatal]

NARRATIVE: CASE EVENT DATE: 202102
